FAERS Safety Report 9712009 (Version 2)
Quarter: 2013Q4

REPORT INFORMATION
  Report Type: Spontaneous
  Country: IT (occurrence: IT)
  Receive Date: 20131126
  Receipt Date: 20131204
  Transmission Date: 20140711
  Serious: Yes (Life-Threatening, Hospitalization)
  Sender: FDA-Public Use
  Company Number: IT-TEVA-444416ISR

PATIENT
  Age: 66 Year
  Sex: Female

DRUGS (1)
  1. CARBAMAZEPINE [Suspect]
     Indication: INTENTIONAL OVERDOSE
     Dosage: 12G OF EXTENDED-RELEASE CARBAMAZEPINE TABLETS
     Route: 048

REACTIONS (7)
  - Bradycardia [Recovered/Resolved]
  - Vomiting [Unknown]
  - Disorientation [Unknown]
  - Trismus [Unknown]
  - Eye movement disorder [Unknown]
  - Mydriasis [Unknown]
  - Intentional overdose [Unknown]
